FAERS Safety Report 7306335-7 (Version None)
Quarter: 2011Q1

REPORT INFORMATION
  Report Type: 
  Country: None (occurrence: None)
  Receive Date: 20110222
  Receipt Date: 20110209
  Transmission Date: 20110831
  Serious: Yes (Hospitalization, Other)
  Sender: FDA-Public Use
  Company Number: GB-AMGEN-GBRCT2010008765

PATIENT
  Age: 65 Year
  Sex: Male
  Weight: 96 kg

DRUGS (10)
  1. RAMIPRIL [Concomitant]
     Dosage: 10 MG, 1X/DAY
  2. SOLPADOL [Concomitant]
     Dosage: 1 DF (30/500), 3X/DAY
  3. ALENDRONIC ACID [Concomitant]
     Dosage: 70 MG, WEEKLY
  4. GLICLAZIDE [Concomitant]
     Dosage: 40 MG, QD
  5. PREDNISOLONE [Concomitant]
     Dosage: 10 MG, 1X/DAY
  6. ETANERCEPT [Suspect]
     Indication: RHEUMATOID ARTHRITIS
     Dosage: UNK
     Dates: start: 20060415, end: 20100811
  7. ACETYLSALICYLIC ACID [Concomitant]
     Dosage: 5 MG, QD
  8. METFORMIN [Concomitant]
     Dosage: UNK
     Dates: start: 20100710
  9. OMEPRAZOLE [Concomitant]
     Dosage: 20 MG, 1X/DAY
  10. GLICLAZIDE [Concomitant]
     Dosage: 40 MG, 2X/DAY

REACTIONS (5)
  - POSTOPERATIVE WOUND INFECTION [None]
  - ENCEPHALITIS HERPES [None]
  - ILEUS PARALYTIC [None]
  - LAPAROTOMY [None]
  - CEREBROVASCULAR ACCIDENT [None]
